FAERS Safety Report 9778476 (Version 1)
Quarter: 2013Q4

REPORT INFORMATION
  Report Type: Not Available
  Country: FR (occurrence: FR)
  Receive Date: 20131223
  Receipt Date: 20131223
  Transmission Date: 20140711
  Serious: Yes (Hospitalization)
  Sender: FDA-Public Use
  Company Number: FR-ASTELLAS-2013EU011365

PATIENT
  Age: 49 Year
  Sex: Female

DRUGS (4)
  1. ADVAGRAF [Suspect]
     Dosage: 4 MG/DAY, UNKNOWN/D
     Route: 065
     Dates: start: 2009
  2. RAPAMUNE [Suspect]
     Dosage: 3 MG/DAY, UNKNOWN/D
     Route: 065
     Dates: start: 2009
  3. PREVISCAN                          /00261401/ [Concomitant]
     Dosage: UNK
     Route: 065
     Dates: start: 2011
  4. COUMADINE [Concomitant]
     Dosage: UNK
     Route: 065
     Dates: start: 2011

REACTIONS (1)
  - Cerebral vasoconstriction [Recovering/Resolving]
